FAERS Safety Report 5830483-1 (Version None)
Quarter: 2008Q3

REPORT INFORMATION
  Report Type: 
  Country: None (occurrence: None)
  Receive Date: 20080801
  Receipt Date: 20070607
  Transmission Date: 20090109
  Serious: Yes (Hospitalization)
  Sender: FDA-Public Use
  Company Number: US-BRISTOL-MYERS SQUIBB COMPANY-13807177

PATIENT
  Sex: Male
  Weight: 73 kg

DRUGS (13)
  1. COUMADIN [Suspect]
     Indication: DEEP VEIN THROMBOSIS
  2. AVODART [Concomitant]
  3. HYTRIN [Concomitant]
  4. ALLOPURINOL [Concomitant]
  5. SIMVASTIN [Concomitant]
  6. ACTONEL [Concomitant]
  7. SYNTHROID [Concomitant]
  8. ASPIRIN [Concomitant]
  9. ASCORBIC ACID [Concomitant]
     Route: 048
  10. MULTI-VITAMIN [Concomitant]
  11. METAMUCIL [Concomitant]
     Dates: start: 20070601
  12. MIRALAX [Concomitant]
     Dates: start: 20070601
  13. SENOKOT [Concomitant]
     Dates: start: 20070601

REACTIONS (3)
  - GASTROINTESTINAL HAEMORRHAGE [None]
  - HAEMORRHAGE [None]
  - INTERNATIONAL NORMALISED RATIO DECREASED [None]
